FAERS Safety Report 5942781-1 (Version None)
Quarter: 2008Q4

REPORT INFORMATION
  Report Type: 
  Country: None (occurrence: None)
  Receive Date: 20081106
  Receipt Date: 20081030
  Transmission Date: 20090506
  Serious: Yes (Hospitalization)
  Sender: FDA-Public Use
  Company Number: US-JNJFOC-20081100267

PATIENT
  Sex: Female
  Weight: 86.18 kg

DRUGS (9)
  1. FENTANYL TRANSDERMAL SYSTEM [Suspect]
     Indication: BACK PAIN
     Route: 062
  2. CELEXA [Suspect]
     Indication: DEPRESSION
     Route: 048
  3. UNSPECIFIED DEPRESSION MEDICATION [Suspect]
     Indication: DEPRESSION
     Route: 048
  4. PLAVIX [Concomitant]
     Indication: STENT PLACEMENT
     Route: 048
  5. ASPIRIN [Concomitant]
     Indication: STENT PLACEMENT
     Route: 048
  6. COREG [Concomitant]
     Indication: CARDIAC DISORDER
     Route: 048
  7. ARTHROTEC [Concomitant]
     Indication: DEPRESSION
     Route: 048
  8. NEURONTIN [Concomitant]
     Route: 048
  9. LORAZEPAM [Concomitant]
     Indication: ANXIETY
     Dosage: 1MG TABLET IS TAKEN DAILY AS NECESSARY
     Route: 048

REACTIONS (7)
  - DEPRESSION [None]
  - DRY MOUTH [None]
  - FEELING ABNORMAL [None]
  - HYPERHIDROSIS [None]
  - MYOCARDIAL INFARCTION [None]
  - SOMNOLENCE [None]
  - WRONG TECHNIQUE IN DRUG USAGE PROCESS [None]
